FAERS Safety Report 7290108-8 (Version None)
Quarter: 2011Q1

REPORT INFORMATION
  Report Type: 
  Country: None (occurrence: None)
  Receive Date: 20110214
  Receipt Date: 20110204
  Transmission Date: 20110831
  Serious: Yes (Hospitalization)
  Sender: FDA-Public Use
  Company Number: AR-BRISTOL-MYERS SQUIBB COMPANY-14141345

PATIENT
  Age: 21 Year
  Sex: Male

DRUGS (5)
  1. ABATACEPT [Suspect]
     Indication: SYSTEMIC LUPUS ERYTHEMATOSUS
     Route: 042
     Dates: start: 20071212, end: 20081112
  2. PREDNISONE TAB [Suspect]
     Indication: SYSTEMIC LUPUS ERYTHEMATOSUS
     Dosage: 10MAR08-05APR08;08APR08-CONTD
     Route: 048
     Dates: start: 20080310
  3. MYCOPHENOLATE MOFETIL [Suspect]
     Indication: SYSTEMIC LUPUS ERYTHEMATOSUS
     Dosage: 12DEC07-05APR08;15APR08-CONTD
     Route: 048
     Dates: start: 20071212
  4. RANITIDINE [Concomitant]
     Dates: start: 20071219
  5. ACETAMINOPHEN [Concomitant]
     Dates: start: 20070601

REACTIONS (1)
  - GASTROENTERITIS [None]
